FAERS Safety Report 21724502 (Version 1)
Quarter: 2022Q4

REPORT INFORMATION
  Report Type: Spontaneous
  Country: US (occurrence: US)
  Receive Date: 20221213
  Receipt Date: 20221213
  Transmission Date: 20230112
  Serious: No
  Sender: FDA-Public Use
  Company Number: US-Dermavant-000187

PATIENT
  Age: 61 Year
  Sex: Female

DRUGS (1)
  1. TAPINAROF [Suspect]
     Active Substance: TAPINAROF
     Dosage: 1 OUNCE DAILY, AREA OF APPLICATION: HANDS
     Dates: start: 20220810

REACTIONS (1)
  - Drug ineffective [Unknown]
